FAERS Safety Report 6644608-1 (Version None)
Quarter: 2010Q1

REPORT INFORMATION
  Report Type: 
  Country: None (occurrence: None)
  Receive Date: 20100318
  Receipt Date: 20100318
  Transmission Date: 20100710
  Serious: Yes (Other)
  Sender: FDA-Public Use
  Company Number: None

PATIENT
  Sex: Female
  Weight: 77.3 kg

DRUGS (10)
  1. TOPIRAMATE [Suspect]
     Indication: MIGRAINE PROPHYLAXIS
     Dosage: 25 MG BID PO
     Route: 048
     Dates: start: 20091010
  2. ADVAIR DISKUS 100/50 [Concomitant]
  3. VALTREX [Concomitant]
  4. PREMARIN [Concomitant]
  5. ESTRACE [Concomitant]
  6. ALBUTEROL [Concomitant]
  7. AMBIEN CR [Concomitant]
  8. BUPROPRION [Concomitant]
  9. CELEBREX [Concomitant]
  10. ... [Concomitant]

REACTIONS (4)
  - CHEST DISCOMFORT [None]
  - DYSPNOEA [None]
  - RESPIRATORY DISTRESS [None]
  - WHEEZING [None]
